FAERS Safety Report 9375469 (Version 2)
Quarter: 2014Q1

REPORT INFORMATION
  Report Type: Report from Study
  Country: RU (occurrence: RU)
  Receive Date: 20130628
  Receipt Date: 20140124
  Transmission Date: 20141002
  Serious: Yes (Hospitalization, Other)
  Sender: FDA-Public Use
  Company Number: RU-GLAXOSMITHKLINE-B0903578A

PATIENT
  Age: 60 Year
  Sex: Male

DRUGS (7)
  1. OMACOR [Suspect]
     Indication: MYOCARDIAL INFARCTION
     Dosage: 1000MG PER DAY
     Route: 048
     Dates: start: 20130116
  2. ASPIRIN [Concomitant]
     Dosage: 100MG PER DAY
     Route: 048
     Dates: start: 20121223
  3. CLOPIDOGREL [Concomitant]
     Dosage: 75MG PER DAY
     Route: 048
     Dates: start: 20121223
  4. METOPROLOL [Concomitant]
     Dosage: 150MG PER DAY
     Route: 048
     Dates: start: 20121223, end: 20130222
  5. ENALAPRIL [Concomitant]
     Dosage: 20MG PER DAY
     Route: 048
     Dates: start: 20121223, end: 20130222
  6. BISOPROLOL [Concomitant]
     Dosage: 5MG PER DAY
     Route: 048
     Dates: start: 20130222
  7. PERINDOPRIL [Concomitant]
     Dosage: 5MG PER DAY
     Route: 048
     Dates: start: 20130222

REACTIONS (4)
  - Atrial fibrillation [Recovered/Resolved]
  - Atrial fibrillation [Recovered/Resolved]
  - Arteriosclerosis coronary artery [Unknown]
  - Coronary artery stenosis [Unknown]
